FAERS Safety Report 8144142 (Version 3)
Quarter: 2013Q1

REPORT INFORMATION
  Report Type: Spontaneous
  Country: CA (occurrence: CA)
  Receive Date: 20110920
  Receipt Date: 20130305
  Transmission Date: 20140127
  Serious: Yes (Other)
  Sender: FDA-Public Use
  Company Number: CA-PFIZER INC-2011218558

PATIENT
  Age: 57 Year
  Sex: Male
  Weight: 99.77 kg

DRUGS (6)
  1. CELEBREX [Suspect]
     Indication: ARTHRITIS
     Dosage: 200 MG, 2X/DAY
     Route: 048
     Dates: start: 20110831, end: 20110914
  2. CELEBREX [Suspect]
     Indication: ARTHRALGIA
  3. CELEBREX [Suspect]
     Indication: OSTEOARTHRITIS
  4. CELEBREX [Suspect]
     Indication: LIGAMENT RUPTURE
  5. TYLENOL W/CODEINE NO. 3 [Concomitant]
     Indication: MYALGIA
     Dosage: 1-2 PER DAY
     Dates: start: 20110731
  6. LEVOFLOXACIN [Concomitant]
     Indication: INFECTION
     Dosage: 500 UNK, 1X/DAY

REACTIONS (7)
  - Dyspnoea [Recovered/Resolved]
  - Orthopnoea [Recovered/Resolved]
  - Mitral valve incompetence [Unknown]
  - Cardiac failure congestive [Unknown]
  - Sleep apnoea syndrome [Unknown]
  - Heart rate increased [Not Recovered/Not Resolved]
  - Myalgia [Not Recovered/Not Resolved]
